FAERS Safety Report 6617082-9 (Version None)
Quarter: 2010Q1

REPORT INFORMATION
  Report Type: 
  Country: None (occurrence: None)
  Receive Date: 20100307
  Receipt Date: 20100223
  Transmission Date: 20100710
  Serious: Yes (Death)
  Sender: FDA-Public Use
  Company Number: JP-BRISTOL-MYERS SQUIBB COMPANY-14901151

PATIENT
  Age: 44 Year
  Sex: Male

DRUGS (9)
  1. IFOMIDE [Suspect]
     Indication: TESTICULAR CHORIOCARCINOMA STAGE III
     Route: 041
  2. LASTET [Suspect]
     Indication: TESTICULAR CHORIOCARCINOMA STAGE III
  3. PACLITAXEL [Suspect]
     Indication: TESTICULAR CHORIOCARCINOMA STAGE III
  4. RANDA [Suspect]
     Indication: TESTICULAR CHORIOCARCINOMA STAGE III
  5. BLEO [Suspect]
     Indication: TESTICULAR CHORIOCARCINOMA STAGE III
  6. AQUPLA [Suspect]
     Indication: TESTICULAR CHORIOCARCINOMA STAGE III
  7. GEMZAR [Suspect]
     Indication: TESTICULAR CHORIOCARCINOMA STAGE III
  8. IRINOTECAN HCL [Suspect]
     Indication: TESTICULAR CHORIOCARCINOMA STAGE III
  9. RADIATION THERAPY [Suspect]
     Indication: TESTICULAR CHORIOCARCINOMA STAGE III

REACTIONS (2)
  - BONE MARROW FAILURE [None]
  - SEPSIS [None]
